FAERS Safety Report 4492462-9 (Version None)
Quarter: 2004Q4

REPORT INFORMATION
  Report Type: 
  Country: None (occurrence: None)
  Receive Date: 20041029
  Receipt Date: 20041018
  Transmission Date: 20050328
  Serious: Yes (Hospitalization)
  Sender: FDA-Public Use
  Company Number: 202334

PATIENT
  Age: 56 Year
  Sex: Female
  Weight: 65.7716 kg

DRUGS (8)
  1. AVONEX [Suspect]
     Indication: MULTIPLE SCLEROSIS
     Dosage: 30 MCG QW IM
     Route: 030
     Dates: start: 20021001, end: 20030101
  2. AVONEX [Suspect]
     Indication: MULTIPLE SCLEROSIS
     Dosage: 30 MCG QW IM
     Route: 030
     Dates: start: 20030101
  3. DETROL [Concomitant]
  4. INDERAL [Concomitant]
  5. ZOLOFT [Concomitant]
  6. LORAZEPAM [Concomitant]
  7. ESTRATEST [Concomitant]
  8. PROVIGIL [Concomitant]

REACTIONS (8)
  - CERVICAL SPINAL STENOSIS [None]
  - CONDITION AGGRAVATED [None]
  - CYSTITIS [None]
  - HYPOAESTHESIA [None]
  - MEDICAL DEVICE COMPLICATION [None]
  - MULTIPLE SCLEROSIS [None]
  - POST PROCEDURAL COMPLICATION [None]
  - SPINAL OSTEOARTHRITIS [None]
